FAERS Safety Report 6495060-0 (Version None)
Quarter: 2009Q4

REPORT INFORMATION
  Report Type: 
  Country: None (occurrence: None)
  Receive Date: 20091214
  Receipt Date: 20090427
  Transmission Date: 20100525
  Serious: No
  Sender: FDA-Public Use
  Company Number: US-BRISTOL-MYERS SQUIBB COMPANY-14602114

PATIENT
  Age: 70 Year
  Sex: Female

DRUGS (4)
  1. ABILIFY [Suspect]
     Indication: ANXIETY
     Dosage: 1/2 TAB
     Dates: start: 20080901
  2. TYLENOL (CAPLET) [Suspect]
  3. LISINOPRIL [Concomitant]
  4. PRILOSEC [Concomitant]

REACTIONS (4)
  - DYSPNOEA [None]
  - INSOMNIA [None]
  - MUSCULOSKELETAL PAIN [None]
  - WEIGHT INCREASED [None]
